FAERS Safety Report 8798224 (Version 2)
Quarter: 2013Q1

REPORT INFORMATION
  Report Type: Report from Study
  Country: JP (occurrence: JP)
  Receive Date: 20120920
  Receipt Date: 20130207
  Transmission Date: 20140127
  Serious: Yes (Death)
  Sender: FDA-Public Use
  Company Number: JP-PFIZER INC-2012230495

PATIENT
  Age: 74 Year
  Sex: Female
  Weight: 35.6 kg

DRUGS (12)
  1. MYCOBUTIN [Suspect]
     Indication: MYCOBACTERIUM AVIUM COMPLEX INFECTION
     Dosage: 300 MG, 1X/DAY
     Route: 048
     Dates: start: 20100128, end: 20100606
  2. MYCOBUTIN [Suspect]
     Dosage: 150 MG, 1X/DAY
     Dates: start: 20100607
  3. EBUTOL [Concomitant]
     Indication: MYCOBACTERIUM AVIUM COMPLEX INFECTION
     Dosage: 500 MG, 1X/DAY
     Route: 048
     Dates: start: 20100128, end: 20100606
  4. EBUTOL [Concomitant]
     Dosage: 250 MG, 1X/DAY
     Route: 048
     Dates: start: 20100607, end: 20100808
  5. GASTER [Concomitant]
     Dosage: 20 MG, 2X/DAY
     Route: 048
     Dates: start: 20100128, end: 20100808
  6. CLARITH [Concomitant]
     Indication: MYCOBACTERIUM AVIUM COMPLEX INFECTION
     Dosage: 400 MG, 2X/DAY
     Dates: start: 20100128, end: 20100808
  7. FRANDOL [Concomitant]
     Dosage: 40 MG, 1X/DAY
     Route: 062
     Dates: start: 20100128, end: 20100808
  8. ELNEOPA NO.1 [Concomitant]
     Indication: NUTRITIONAL SUPPLEMENTATION
     Dosage: 2000 ML, 1X/DAY
     Route: 042
     Dates: start: 20100414, end: 20100518
  9. ELNEOPA NO.1 [Concomitant]
     Dosage: 1000 ML, 1X/DAY
     Route: 042
     Dates: start: 20100629, end: 20100630
  10. ELNEOPA NO.1 [Concomitant]
     Dosage: 2000 ML, 2X/DAY
     Route: 042
     Dates: start: 20100701, end: 20100808
  11. BAKTAR [Concomitant]
     Indication: STAPHYLOCOCCAL INFECTION
  12. AMLODIN [Concomitant]
     Dosage: 5 MG, 1X/DAY
     Route: 048
     Dates: start: 20100407, end: 20100808

REACTIONS (1)
  - Hypercapnia [Fatal]
